FAERS Safety Report 7366127-X (Version None)
Quarter: 2011Q1

REPORT INFORMATION
  Report Type: 
  Country: None (occurrence: None)
  Receive Date: 20110322
  Receipt Date: 20110308
  Transmission Date: 20110831
  Serious: Yes (Hospitalization)
  Sender: FDA-Public Use
  Company Number: US-JNJFOC-20070805534

PATIENT
  Sex: Male
  Weight: 25.7 kg

DRUGS (8)
  1. MERCAPTOPURINE [Concomitant]
  2. PREDNISONE [Concomitant]
     Dosage: 30 MG DAILY FOR ONE WEEK THEN TAPER DOSE
  3. INFLIXIMAB [Suspect]
     Dosage: 2 DOSES ON UNKNOWN DATES
     Route: 042
  4. INFLIXIMAB [Suspect]
     Route: 042
  5. FERROUS SULFATE TAB [Concomitant]
  6. MESALAMINE [Concomitant]
  7. ZANTAC [Concomitant]
  8. INFLIXIMAB [Suspect]
     Indication: INFLAMMATORY BOWEL DISEASE
     Dosage: 2 PRIOR INFUSIONS ON UNKNOWN DATES
     Route: 042

REACTIONS (1)
  - COLITIS [None]
